FAERS Safety Report 22896537 (Version 3)
Quarter: 2024Q1

REPORT INFORMATION
  Report Type: Spontaneous
  Country: US (occurrence: US)
  Receive Date: 20230901
  Receipt Date: 20240305
  Transmission Date: 20240409
  Serious: Yes (Life-Threatening, Hospitalization, Other)
  Sender: FDA-Public Use
  Company Number: US-PFIZER INC-PV202300136056

PATIENT
  Age: 71 Year
  Sex: Female

DRUGS (3)
  1. IBRANCE [Suspect]
     Active Substance: PALBOCICLIB
     Indication: Breast cancer female
     Dosage: 100 MG, CYCLIC (TAKE 1 TAB (100 MG) BY MOUTH ONCE A DAY FOR 21 DAYS AND THEN REST FOR 7 DAYS)
     Route: 048
     Dates: start: 20230731
  2. LETROZOLE [Concomitant]
     Active Substance: LETROZOLE
     Indication: Breast cancer female
     Dosage: 2.5 MG, DAILY
     Dates: start: 20230417
  3. XGEVA [Concomitant]
     Active Substance: DENOSUMAB
     Indication: Metastases to bone
     Dosage: 120 MG, CYCLIC 20MG Q(EVERY) 28 DAYS
     Dates: start: 20230407

REACTIONS (3)
  - Cardiac arrest [Recovered/Resolved with Sequelae]
  - Dizziness [Unknown]
  - Constipation [Unknown]

NARRATIVE: CASE EVENT DATE: 20230804
